FAERS Safety Report 17621389 (Version 3)
Quarter: 2020Q3

REPORT INFORMATION
  Report Type: Spontaneous
  Country: US (occurrence: US)
  Receive Date: 20200403
  Receipt Date: 20200831
  Transmission Date: 20201102
  Serious: No
  Sender: FDA-Public Use
  Company Number: US-TEVA-2020-US-1215544

PATIENT
  Sex: Female

DRUGS (2)
  1. AUSTEDO [Suspect]
     Active Substance: DEUTETRABENAZINE
     Indication: DYSTONIA
     Dosage: 12 MILLIGRAM DAILY;
  2. CBD OIL [Concomitant]
     Active Substance: CANNABIDIOL\HERBALS
     Route: 065

REACTIONS (5)
  - Insomnia [None]
  - Drug ineffective [None]
  - Product use in unapproved indication [Unknown]
  - Headache [Unknown]
  - Nausea [Unknown]
